FAERS Safety Report 8801502 (Version 3)
Quarter: 2015Q1

REPORT INFORMATION
  Report Type: Report from Study
  Country: US (occurrence: US)
  Receive Date: 20120921
  Receipt Date: 20150115
  Transmission Date: 20150721
  Serious: Yes (Death)
  Sender: FDA-Public Use
  Company Number: US-ROCHE-1124765

PATIENT
  Sex: Female
  Weight: 51.53 kg

DRUGS (10)
  1. TAXOL [Concomitant]
     Active Substance: PACLITAXEL
     Dosage: RECEIVED ON 20/OCT/2009.
     Route: 042
  2. EMEND [Concomitant]
     Active Substance: APREPITANT
     Route: 042
  3. TAXOTERE [Concomitant]
     Active Substance: DOCETAXEL
     Dosage: RECEIVED ON 10/NOV/2009 AND 01/DEC/2009.
     Route: 042
  4. AVASTIN [Suspect]
     Active Substance: BEVACIZUMAB
     Indication: LUNG NEOPLASM MALIGNANT
     Dosage: RECEIVED ON 10/NOV/2009 AND 01/DEC/2009 AT SAME DOSE.
     Route: 042
     Dates: start: 20091020
  5. ALOXI [Concomitant]
     Active Substance: PALONOSETRON HYDROCHLORIDE
     Dosage: RECEIVED ON 20/OCT/2009, 10/NOV/2009 AND 01/DEC/2009.
     Route: 042
  6. CIMETIDINE [Concomitant]
     Active Substance: CIMETIDINE
     Dosage: RECEIVED ON 20/OCT/2009.
     Route: 042
  7. HEPARIN [Concomitant]
     Active Substance: HEPARIN SODIUM
     Dosage: 5 CC
     Route: 065
  8. NORMAL SALINE [Concomitant]
     Active Substance: SODIUM CHLORIDE
     Route: 065
  9. DECADRON [Concomitant]
     Active Substance: DEXAMETHASONE
     Dosage: RECEIVED ON 20/OCT/2009, 10/NOV/2009 AND 01/DEC/2009.
     Route: 042
  10. BENADRYL [Concomitant]
     Active Substance: DIPHENHYDRAMINE HYDROCHLORIDE
     Dosage: RECEIVED ON 20/OCT/2009.
     Route: 042

REACTIONS (1)
  - Death [Fatal]
